FAERS Safety Report 4601095-2 (Version None)
Quarter: 2005Q1

REPORT INFORMATION
  Report Type: 
  Country: None (occurrence: None)
  Receive Date: 20050304
  Receipt Date: 20050304
  Transmission Date: 20050727
  Serious: Yes (Other)
  Sender: FDA-Public Use
  Company Number: None

PATIENT
  Sex: Female

DRUGS (2)
  1. THIOTHIXENE [Suspect]
     Dosage: 1 BID ORAL
     Route: 048
  2. LORAZEPAM [Suspect]
     Dosage: 1 QD ORAL
     Route: 048

REACTIONS (3)
  - DIZZINESS [None]
  - EYE DISORDER [None]
  - PHARMACEUTICAL PRODUCT COMPLAINT [None]
